FAERS Safety Report 22111113 (Version 1)
Quarter: 2023Q1

REPORT INFORMATION
  Report Type: Spontaneous
  Country: IL (occurrence: IL)
  Receive Date: 20230317
  Receipt Date: 20230317
  Transmission Date: 20230418
  Serious: Yes (Life-Threatening)
  Sender: FDA-Public Use
  Company Number: IL-009507513-2303ISR001102

PATIENT
  Age: 56 Year
  Sex: Female

DRUGS (7)
  1. BRIDION [Suspect]
     Active Substance: SUGAMMADEX
     Dosage: 200 MILLIGRAM
     Dates: start: 20230221
  2. ZOFRAN [Suspect]
     Active Substance: ONDANSETRON HYDROCHLORIDE
  3. ROCURONIUM BROMIDE [Concomitant]
     Active Substance: ROCURONIUM BROMIDE
  4. CEFAMEZIN [CEFAZOLIN SODIUM] [Concomitant]
  5. FENTANYL [Concomitant]
     Active Substance: FENTANYL
  6. PROPOFOL [Concomitant]
     Active Substance: PROPOFOL
     Dosage: UNK
  7. MIDAZOLAM [Concomitant]
     Active Substance: MIDAZOLAM

REACTIONS (1)
  - Anaphylactic shock [Recovering/Resolving]
